FAERS Safety Report 6754946-X (Version None)
Quarter: 2010Q2

REPORT INFORMATION
  Report Type: 
  Country: None (occurrence: None)
  Receive Date: 20100602
  Receipt Date: 20100520
  Transmission Date: 20101027
  Serious: Yes (Hospitalization, Other)
  Sender: FDA-Public Use
  Company Number: 012402

PATIENT
  Sex: Female

DRUGS (2)
  1. KEPPRA [Suspect]
     Indication: EPILEPSY
     Dosage: 1000 MG, ORAL; 2000 MG, ORAL
     Route: 048
  2. KEPPRA [Suspect]
     Indication: EPILEPSY
     Dosage: 1000 MG, ORAL; 2000 MG, ORAL
     Route: 048

REACTIONS (6)
  - AGGRESSION [None]
  - CONDITION AGGRAVATED [None]
  - FLIGHT OF IDEAS [None]
  - HALLUCINATION, AUDITORY [None]
  - OBSESSIVE-COMPULSIVE DISORDER [None]
  - PSYCHOTIC DISORDER [None]
